FAERS Safety Report 8417455-8 (Version None)
Quarter: 2012Q2

REPORT INFORMATION
  Report Type: 
  Country: None (occurrence: None)
  Receive Date: 20120606
  Receipt Date: 20120531
  Transmission Date: 20120825
  Serious: Yes (Other)
  Sender: FDA-Public Use
  Company Number: PHHY2012IT047106

PATIENT
  Age: 30 Year
  Sex: Female

DRUGS (3)
  1. OXALIPLATIN [Suspect]
     Dosage: UNK
     Dates: start: 20060901
  2. FLUOROURACIL [Suspect]
     Dosage: UNK
     Dates: start: 20060901
  3. LEUCOVORIN CALCIUM [Suspect]
     Dosage: UNK
     Dates: start: 20060901

REACTIONS (5)
  - NEUROTOXICITY [None]
  - VOMITING [None]
  - STOMATITIS [None]
  - HEPATOTOXICITY [None]
  - NAUSEA [None]
